FAERS Safety Report 21007938 (Version 2)
Quarter: 2022Q3

REPORT INFORMATION
  Report Type: Other
  Country: CA (occurrence: None)
  Receive Date: 20220627
  Receipt Date: 20220804
  Transmission Date: 20221027
  Serious: No
  Sender: FDA-Public Use
  Company Number: CA-ROCHE-3002791

PATIENT
  Sex: Female

DRUGS (3)
  1. OCREVUS [Suspect]
     Active Substance: OCRELIZUMAB
     Indication: Relapsing-remitting multiple sclerosis
     Dosage: 300 MG AT DAY 0 AND 14, THEN 600 MG EVERY 6 MONTH?LAST INFUSION DATE: /JAN/2021
     Route: 042
     Dates: start: 20171116
  2. FOSFOMYCIN [Concomitant]
     Active Substance: FOSFOMYCIN
  3. GLATIRAMER ACETATE [Concomitant]
     Active Substance: GLATIRAMER ACETATE

REACTIONS (8)
  - Maternal exposure before pregnancy [Unknown]
  - Urinary tract infection [Recovered/Resolved]
  - Carpal tunnel syndrome [Unknown]
  - COVID-19 [Recovered/Resolved]
  - Pain in extremity [Recovered/Resolved]
  - Hypoaesthesia [Recovered/Resolved]
  - Visual impairment [Not Recovered/Not Resolved]
  - Discomfort [Unknown]
